FAERS Safety Report 9998483 (Version 3)
Quarter: 2014Q1

REPORT INFORMATION
  Report Type: Report from Study
  Country: CA (occurrence: CA)
  Receive Date: 20140312
  Receipt Date: 20140321
  Transmission Date: 20141002
  Serious: Yes (Other)
  Sender: FDA-Public Use
  Company Number: CA-ROCHE-1362069

PATIENT
  Sex: Male

DRUGS (3)
  1. PEGASYS [Suspect]
     Indication: CHRONIC HEPATITIS C
     Dosage: 0.5 ML PRE-FILLED SYRINGE
     Route: 058
     Dates: start: 20131018, end: 20140302
  2. COPEGUS [Suspect]
     Indication: CHRONIC HEPATITIS C
     Dosage: 35 TABLET/WEEK
     Route: 048
     Dates: start: 20131018, end: 20140302
  3. VICTRELIS [Suspect]
     Indication: CHRONIC HEPATITIS C
     Route: 048

REACTIONS (5)
  - General physical health deterioration [Unknown]
  - Retinal toxicity [Unknown]
  - Tooth disorder [Unknown]
  - Therapeutic product ineffective [Unknown]
  - Retinopathy [Unknown]
